FAERS Safety Report 15391807 (Version 1)
Quarter: 2018Q3

REPORT INFORMATION
  Report Type: Spontaneous
  Country: US (occurrence: US)
  Receive Date: 20180910
  Receipt Date: 20180910
  Transmission Date: 20181010
  Serious: Yes (Other)
  Sender: FDA-Public Use
  Company Number: None

PATIENT
  Age: 48 Year
  Sex: Female
  Weight: 95.4 kg

DRUGS (2)
  1. VALSARTAN?HCTZ 160 [Suspect]
     Active Substance: HYDROCHLOROTHIAZIDE\VALSARTAN
     Indication: HYPERTENSION
     Dosage: ?          QUANTITY:1 TABLET(S);?
     Route: 048
     Dates: start: 20180101, end: 20180123
  2. AMLO?VALSA?HCTZ?160 [Suspect]
     Active Substance: AMLODIPINE BESYLATE\HYDROCHLOROTHIAZIDE\VALSARTAN
     Indication: HYPERTENSION
     Dosage: ?          QUANTITY:1 TABLET(S);?
     Route: 048
     Dates: start: 20180103, end: 20180202

REACTIONS (7)
  - Muscle spasms [None]
  - Alopecia [None]
  - Insomnia [None]
  - Perineal pain [None]
  - Irritable bowel syndrome [None]
  - Neck pain [None]
  - Palpitations [None]

NARRATIVE: CASE EVENT DATE: 20180108
